FAERS Safety Report 4797492-5 (Version None)
Quarter: 2005Q4

REPORT INFORMATION
  Report Type: 
  Country: None (occurrence: None)
  Receive Date: 20051013
  Receipt Date: 20041225
  Transmission Date: 20060501
  Serious: Yes (Death, Life-Threatening, Hospitalization, Other)
  Sender: FDA-Public Use
  Company Number: US-ABBOTT-04P-163-0284958-00

PATIENT
  Age: 17 Year
  Sex: Male

DRUGS (1)
  1. SEVOFLURANE [Suspect]
     Indication: SUICIDE ATTEMPT
     Route: 055
     Dates: start: 20041224, end: 20041224

REACTIONS (9)
  - CARDIAC ARREST [None]
  - CARDIO-RESPIRATORY ARREST [None]
  - DRUG TOXICITY [None]
  - FLUOROSIS [None]
  - MULTI-ORGAN FAILURE [None]
  - OVERDOSE [None]
  - PULMONARY OEDEMA [None]
  - RESPIRATORY ARREST [None]
  - SUICIDE ATTEMPT [None]
